FAERS Safety Report 22362875 (Version 2)
Quarter: 2023Q2

REPORT INFORMATION
  Report Type: Other
  Country: GR (occurrence: GR)
  Receive Date: 20230525
  Receipt Date: 20230608
  Transmission Date: 20230722
  Serious: Yes (Other)
  Sender: FDA-Public Use
  Company Number: GR-MYLANLABS-2023M1050298

PATIENT
  Age: 39 Year
  Sex: Female

DRUGS (2)
  1. BEVACIZUMAB [Suspect]
     Active Substance: BEVACIZUMAB
     Indication: Metastatic ocular melanoma
     Dosage: UNK
     Route: 065
  2. PACLITAXEL [Concomitant]
     Active Substance: PACLITAXEL
     Indication: Metastatic ocular melanoma
     Dosage: UNK

REACTIONS (4)
  - Colitis [Unknown]
  - Off label use [Unknown]
  - Metastases to liver [Unknown]
  - Disease progression [Unknown]

NARRATIVE: CASE EVENT DATE: 20220601
